FAERS Safety Report 21062628 (Version 1)
Quarter: 2022Q3

REPORT INFORMATION
  Report Type: Spontaneous
  Country: CA (occurrence: CA)
  Receive Date: 20220711
  Receipt Date: 20220711
  Transmission Date: 20221027
  Serious: Yes (Other)
  Sender: FDA-Public Use
  Company Number: CA-JNJFOC-20220710911

PATIENT
  Age: 41 Year
  Sex: Male
  Weight: 81 kg

DRUGS (2)
  1. REMICADE [Suspect]
     Active Substance: INFLIXIMAB
     Indication: Crohn^s disease
     Route: 041
  2. PHENETHICILLIN POTASSIUM [Concomitant]
     Active Substance: PHENETHICILLIN POTASSIUM
     Indication: Product used for unknown indication
     Route: 065

REACTIONS (9)
  - Abdominal distension [Not Recovered/Not Resolved]
  - Arthropod bite [Not Recovered/Not Resolved]
  - Malaise [Not Recovered/Not Resolved]
  - Endodontic procedure [Not Recovered/Not Resolved]
  - Localised infection [Not Recovered/Not Resolved]
  - Condition aggravated [Not Recovered/Not Resolved]
  - Fatigue [Not Recovered/Not Resolved]
  - Intentional product use issue [Not Recovered/Not Resolved]
  - Off label use [Not Recovered/Not Resolved]
